FAERS Safety Report 21560585 (Version 1)
Quarter: 2022Q4

REPORT INFORMATION
  Report Type: Spontaneous
  Country: DE (occurrence: DE)
  Receive Date: 20221107
  Receipt Date: 20221107
  Transmission Date: 20230113
  Serious: Yes (Hospitalization)
  Sender: FDA-Public Use
  Company Number: DE-ADRED-07242-01

PATIENT
  Age: 77 Year
  Sex: Female
  Weight: 67 kg

DRUGS (13)
  1. MITOMYCIN [Suspect]
     Active Substance: MITOMYCIN
     Indication: Product used for unknown indication
     Dosage: 12 MG/SQ. METER, QD ACC TO PLAN AMP
     Route: 042
  2. FLUOROURACIL [Suspect]
     Active Substance: FLUOROURACIL
     Indication: Product used for unknown indication
     Dosage: 1000 MG/SQ. METER, QD, ACC TO PLAN AMP
     Route: 042
  3. METOCLOPRAMIDE [Concomitant]
     Active Substance: METOCLOPRAMIDE
     Dosage: 10 MILLIGRAM, TID, 1-1-1-0, TABLET
     Route: 048
  4. METAMIZOL [Concomitant]
     Active Substance: METAMIZOLE SODIUM
     Dosage: 500 MILLIGRAM, QID, 2-2-2-2, TABLET
     Route: 048
  5. LORAZEPAM [Concomitant]
     Active Substance: LORAZEPAM
     Dosage: 1 MG, PRN IF NECESSARY ORODISPERSIBLE TABLETS
     Route: 060
  6. BISOPROLOL [Concomitant]
     Active Substance: BISOPROLOL
     Dosage: 2.5 MILLIGRAM, BID 1-0-1-0, TABLET
     Route: 048
  7. RAMIPRIL [Concomitant]
     Active Substance: RAMIPRIL
     Dosage: 5 MILLIGRAM, BID, 1-0-1-0, TABLET
     Route: 048
  8. PANTOPRAZOLE SODIUM [Concomitant]
     Active Substance: PANTOPRAZOLE SODIUM
     Dosage: 40 MILLIGRAM, QD,  0-0-1-0, TABLET
     Route: 048
  9. CALCIUM CHLORIDE\SODIUM CHLORIDE\SODIUM PHOSPHATE, DIBASIC, ANHYDROUS\ [Concomitant]
     Active Substance: CALCIUM CHLORIDE\SODIUM CHLORIDE\SODIUM PHOSPHATE, DIBASIC, ANHYDROUS\SODIUM PHOSPHATE, MONOBASIC, A
     Dosage: UNK, TID, 1-1-1-0
     Route: 065
  10. ENOXAPARIN [Concomitant]
     Active Substance: ENOXAPARIN
     Dosage: 40 MG/0.4ML, 0-0-1-0  PRE-FILLED SYRINGES
     Route: 058
  11. SODIUM PICOSULFATE [Concomitant]
     Active Substance: SODIUM PICOSULFATE
     Dosage: UNK UNK, PRN
     Route: 048
  12. LACTULOSE [Concomitant]
     Active Substance: LACTULOSE
     Dosage: 3.335 G/5ML, ON DEMAND, JUICE
     Route: 048
  13. ONDANSETRON [Concomitant]
     Active Substance: ONDANSETRON
     Dosage: 8 MG, PRN IF NECESSARY ORODISPERSIBLE TABLETS
     Route: 060

REACTIONS (4)
  - Wound complication [Unknown]
  - Anal injury [Unknown]
  - Nausea [Unknown]
  - Leukopenia [Unknown]
